FAERS Safety Report 21963633 (Version 5)
Quarter: 2024Q2

REPORT INFORMATION
  Report Type: Spontaneous
  Country: US (occurrence: US)
  Receive Date: 20230207
  Receipt Date: 20240515
  Transmission Date: 20240716
  Serious: No
  Sender: FDA-Public Use
  Company Number: US-SANOFI-01473114

PATIENT
  Age: 47 Year
  Sex: Female

DRUGS (5)
  1. CEREZYME [Suspect]
     Active Substance: IMIGLUCERASE
     Indication: Gaucher^s disease type I
     Dosage: 5200 IU (60IU/KG), QOW
     Route: 042
  2. CEREZYME [Suspect]
     Active Substance: IMIGLUCERASE
     Dosage: 30 IU/KG, 1X
     Route: 042
     Dates: start: 20230203, end: 20230203
  3. CEREZYME [Suspect]
     Active Substance: IMIGLUCERASE
     Dosage: 5200 IU, QOW
     Route: 042
     Dates: start: 20230213, end: 202306
  4. CEREZYME [Suspect]
     Active Substance: IMIGLUCERASE
     Dosage: HALF DOSE ADMINISTERED, 1X (RECEIVED 3 DAYS EARLY)
     Route: 042
     Dates: start: 20230630, end: 20230630
  5. CEREZYME [Suspect]
     Active Substance: IMIGLUCERASE
     Dosage: 5200 IU, QOW
     Route: 042
     Dates: start: 202307

REACTIONS (2)
  - Malaise [Recovering/Resolving]
  - Inappropriate schedule of product administration [Unknown]
